FAERS Safety Report 8039616-2 (Version None)
Quarter: 2012Q1

REPORT INFORMATION
  Report Type: 
  Country: None (occurrence: None)
  Receive Date: 20120111
  Receipt Date: 20111219
  Transmission Date: 20120608
  Serious: No
  Sender: FDA-Public Use
  Company Number: US-AMGEN-USASP2011067772

PATIENT
  Age: 55 Year
  Sex: Female

DRUGS (1)
  1. ENBREL [Suspect]
     Indication: PSORIASIS
     Dosage: 50 MG, QWK
     Dates: start: 20091009

REACTIONS (7)
  - HEADACHE [None]
  - PYREXIA [None]
  - COUGH [None]
  - DIZZINESS [None]
  - FATIGUE [None]
  - STRESS [None]
  - FEELING HOT [None]
